FAERS Safety Report 24111574 (Version 4)
Quarter: 2025Q3

REPORT INFORMATION
  Report Type: Report from Study
  Country: IL (occurrence: IL)
  Receive Date: 20240718
  Receipt Date: 20250714
  Transmission Date: 20251020
  Serious: No
  Sender: TAKEDA
  Company Number: IL-TAKEDA-IL202008257

PATIENT
  Age: 29 Year
  Sex: Female

DRUGS (2)
  1. VELAGLUCERASE ALFA [Suspect]
     Active Substance: VELAGLUCERASE ALFA
     Indication: Gaucher^s disease
     Dosage: 15 INTERNATIONAL UNIT/KILOGRAM, 1X/2WKS
     Dates: start: 20100128, end: 20190603
  2. VELAGLUCERASE ALFA [Suspect]
     Active Substance: VELAGLUCERASE ALFA
     Dosage: 60 INTERNATIONAL UNIT/KILOGRAM, 1X/2WKS
     Dates: start: 20190626

REACTIONS (2)
  - No adverse event [Unknown]
  - Pregnancy [Recovered/Resolved]
